FAERS Safety Report 24783443 (Version 2)
Quarter: 2025Q3

REPORT INFORMATION
  Report Type: Spontaneous
  Country: US (occurrence: US)
  Receive Date: 20241227
  Receipt Date: 20250729
  Transmission Date: 20251020
  Serious: No
  Sender: SANOFI AVENTIS
  Company Number: US-SA-2024SA382224

PATIENT
  Age: 32 Year
  Sex: Male
  Weight: 56.689 kg

DRUGS (4)
  1. CERDELGA [Suspect]
     Active Substance: ELIGLUSTAT
     Indication: Gaucher^s disease
     Dosage: 84 MG, BID
     Route: 048
     Dates: start: 20240925
  2. VITAMINS NOS [Concomitant]
     Active Substance: VITAMINS
  3. CEREZYME [Concomitant]
     Active Substance: IMIGLUCERASE
  4. HEPARIN [Concomitant]
     Active Substance: HEPARIN SODIUM

REACTIONS (1)
  - Inappropriate schedule of product administration [Unknown]

NARRATIVE: CASE EVENT DATE: 20240101
